FAERS Safety Report 5876736-2 (Version None)
Quarter: 2008Q3

REPORT INFORMATION
  Report Type: 
  Country: None (occurrence: None)
  Receive Date: 20080910
  Receipt Date: 20080904
  Transmission Date: 20090109
  Serious: Yes (Hospitalization)
  Sender: FDA-Public Use
  Company Number: US-MERCK-0809USA00733

PATIENT
  Sex: Female

DRUGS (7)
  1. JANUVIA [Suspect]
     Indication: DIABETES MELLITUS
     Route: 048
     Dates: start: 20070101
  2. METFORMIN [Concomitant]
     Route: 065
  3. METOPROLOL [Concomitant]
     Route: 065
  4. ASPIRIN [Concomitant]
     Route: 065
  5. CAPTOPRIL [Concomitant]
     Route: 065
  6. PREVACID [Concomitant]
     Route: 065
  7. DULCOLAX [Concomitant]
     Route: 065

REACTIONS (2)
  - HEART RATE INCREASED [None]
  - HYPOTENSION [None]
